FAERS Safety Report 6768213-1 (Version None)
Quarter: 2010Q2

REPORT INFORMATION
  Report Type: 
  Country: None (occurrence: None)
  Receive Date: 20100614
  Receipt Date: 20100602
  Transmission Date: 20101027
  Serious: Yes (Hospitalization)
  Sender: FDA-Public Use
  Company Number: JP-MERCK-1006USA00795

PATIENT
  Age: 32 Year
  Sex: Female

DRUGS (21)
  1. PEPCID RPD [Suspect]
     Indication: GASTRIC ULCER
     Route: 048
     Dates: start: 20100512
  2. PRIMPERAN [Suspect]
     Route: 048
     Dates: start: 20100512, end: 20100526
  3. LUVOX [Suspect]
     Route: 048
     Dates: start: 20081118, end: 20100523
  4. PAXIL [Suspect]
     Route: 048
     Dates: start: 20080422, end: 20100601
  5. LEVOTOMIN (LEVOMEPROMAZINE MALEATE) [Suspect]
     Route: 048
     Dates: start: 20080722, end: 20100601
  6. HALCION [Suspect]
     Route: 048
     Dates: start: 20081027, end: 20100525
  7. MUCOSTA [Suspect]
     Route: 048
     Dates: start: 20100512
  8. ZYPREXA [Concomitant]
     Route: 048
     Dates: start: 20080422, end: 20100525
  9. ROHYPNOL [Concomitant]
     Route: 065
     Dates: start: 20080422, end: 20090714
  10. MARZULENE-S [Concomitant]
     Route: 065
     Dates: start: 20080422, end: 20100523
  11. LAC-B [Concomitant]
     Route: 065
     Dates: start: 20080422, end: 20090211
  12. KONSUBEN [Concomitant]
     Route: 065
     Dates: start: 20100527, end: 20100527
  13. PARIET [Concomitant]
     Route: 065
     Dates: start: 20100409, end: 20100423
  14. GASMOTIN [Concomitant]
     Route: 065
     Dates: start: 20100411, end: 20100416
  15. NAUZELIN [Concomitant]
     Route: 065
     Dates: start: 20100409
  16. STROCAIN [Concomitant]
     Route: 065
     Dates: start: 20100416, end: 20100430
  17. DOGMATYL [Concomitant]
     Route: 065
     Dates: start: 20100416, end: 20100430
  18. OMEPRAL [Concomitant]
     Route: 065
     Dates: start: 20100416, end: 20100430
  19. BUSCOPAN [Concomitant]
     Route: 065
  20. LIPIDIL [Concomitant]
     Route: 065
     Dates: start: 20080610, end: 20100523
  21. URDENACIN [Concomitant]
     Route: 065
     Dates: start: 20100525, end: 20100601

REACTIONS (1)
  - LIVER DISORDER [None]
